FAERS Safety Report 5820318-5 (Version None)
Quarter: 2008Q3

REPORT INFORMATION
  Report Type: 
  Country: None (occurrence: None)
  Receive Date: 20080724
  Receipt Date: 20070606
  Transmission Date: 20090109
  Serious: No
  Sender: FDA-Public Use
  Company Number: A0654407A

PATIENT
  Sex: Male

DRUGS (4)
  1. AVANDIA [Suspect]
     Dosage: 8MG PER DAY
     Route: 048
  2. ZOCOR [Concomitant]
  3. GLIBURIDE [Concomitant]
  4. TOPRAL [Concomitant]

REACTIONS (3)
  - BLOOD GLUCOSE INCREASED [None]
  - DIZZINESS [None]
  - PALPITATIONS [None]
